FAERS Safety Report 4312368-5 (Version None)
Quarter: 2004Q1

REPORT INFORMATION
  Report Type: 
  Country: None (occurrence: None)
  Receive Date: 20040303
  Receipt Date: 20040223
  Transmission Date: 20041129
  Serious: Yes (Other)
  Sender: FDA-Public Use
  Company Number: KDL064543

PATIENT
  Age: 61 Year
  Sex: Male

DRUGS (4)
  1. EPOGEN [Suspect]
     Indication: RENAL FAILURE CHRONIC
     Dosage: 25000 U, 3 IN 1 WEEKS, IV
     Route: 042
     Dates: start: 20000711, end: 20040129
  2. CYCLOSPROINE [Concomitant]
  3. CYCLOPHOSPHAMIDE [Concomitant]
  4. PARICALCITOL [Concomitant]

REACTIONS (4)
  - APLASIA PURE RED CELL [None]
  - HAEMOLYTIC ANAEMIA [None]
  - LEUKAEMIA [None]
  - PLATELET COUNT DECREASED [None]
